FAERS Safety Report 16264559 (Version 2)
Quarter: 2019Q2

REPORT INFORMATION
  Report Type: Report from Study
  Country: DE (occurrence: DE)
  Receive Date: 20190502
  Receipt Date: 20190515
  Transmission Date: 20190711
  Serious: Yes (Other)
  Sender: FDA-Public Use
  Company Number: DE-KYOWAKIRIN-2019BKK006765

PATIENT

DRUGS (2)
  1. BUROSUMAB [Suspect]
     Active Substance: BUROSUMAB
     Dosage: 5 MG
     Route: 058
     Dates: start: 20190212, end: 2019
  2. BUROSUMAB [Suspect]
     Active Substance: BUROSUMAB
     Indication: HEREDITARY HYPOPHOSPHATAEMIC RICKETS
     Dosage: 5 MG
     Route: 058
     Dates: start: 20190424

REACTIONS (1)
  - Scarlet fever [Recovered/Resolved]

NARRATIVE: CASE EVENT DATE: 20190418
